FAERS Safety Report 10330873 (Version 2)
Quarter: 2014Q3

REPORT INFORMATION
  Report Type: Report from Study
  Country: BR (occurrence: BR)
  Receive Date: 20140722
  Receipt Date: 20140723
  Transmission Date: 20150326
  Serious: Yes (Death)
  Sender: FDA-Public Use
  Company Number: BR-SA-2014SA095687

PATIENT
  Sex: Male

DRUGS (1)
  1. FABRAZYME [Suspect]
     Active Substance: AGALSIDASE BETA
     Indication: FABRY^S DISEASE
     Dosage: PO LIOF
     Route: 042
     Dates: start: 20080531, end: 20140122

REACTIONS (3)
  - Cerebrovascular accident [Fatal]
  - Tremor [Unknown]
  - Pleural effusion [Fatal]
